FAERS Safety Report 7239725-1 (Version None)
Quarter: 2011Q1

REPORT INFORMATION
  Report Type: 
  Country: None (occurrence: None)
  Receive Date: 20110122
  Receipt Date: 20101027
  Transmission Date: 20110831
  Serious: No
  Sender: FDA-Public Use
  Company Number: US-ALLERGAN-1013828US

PATIENT
  Age: 61 Year
  Sex: Female

DRUGS (5)
  1. OTC EYE DROPS FOR MOISTURE [Concomitant]
     Dosage: UNK
  2. WATER PILL SHE THINKS IS LASIX [Concomitant]
  3. LATISSE [Suspect]
     Indication: GROWTH OF EYELASHES
     Dosage: 1 GTT, QHS
     Route: 061
     Dates: start: 20100501
  4. FLOMAX [Concomitant]
     Dosage: UNK
  5. MULTIVITAMIN [Concomitant]

REACTIONS (2)
  - TRICHORRHEXIS [None]
  - MADAROSIS [None]
